FAERS Safety Report 23719505 (Version 3)
Quarter: 2025Q1

REPORT INFORMATION
  Report Type: Spontaneous
  Country: US (occurrence: US)
  Receive Date: 20240408
  Receipt Date: 20250128
  Transmission Date: 20250409
  Serious: Yes (Other)
  Sender: NOVARTIS
  Company Number: US-SANDOZ-SDZ2024US036864

PATIENT
  Age: 26 Year
  Sex: Female

DRUGS (18)
  1. MYFORTIC [Suspect]
     Active Substance: MYCOPHENOLATE SODIUM
     Indication: Liver transplant
     Dosage: 1440 MG, QD (720 MG, BID)
     Route: 048
     Dates: start: 2022, end: 20240328
  2. PANTOPRAZOLE [Concomitant]
     Active Substance: PANTOPRAZOLE
     Indication: Prophylaxis against gastrointestinal ulcer
     Dosage: 40 MG, QD
     Route: 065
     Dates: start: 2023
  3. PANTOPRAZOLE [Concomitant]
     Active Substance: PANTOPRAZOLE
     Dosage: 40 MG, QD
     Route: 065
     Dates: start: 2018
  4. TACROLIMUS [Concomitant]
     Active Substance: TACROLIMUS
     Indication: Transplant rejection
     Dosage: 8 MG, QD (4 MG, BID)
     Route: 065
     Dates: start: 2018
  5. DAPSONE [Concomitant]
     Active Substance: DAPSONE
     Indication: Pneumonia
     Dosage: 20 MG, QD
     Route: 065
     Dates: start: 2023
  6. DAPSONE [Concomitant]
     Active Substance: DAPSONE
     Indication: Prophylaxis
     Dosage: 100 MG, QW
     Route: 065
     Dates: start: 2023
  7. CLOTRIMAZOLE [Concomitant]
     Active Substance: CLOTRIMAZOLE
     Indication: Candida infection
     Dosage: 20 MG, QD (10 MG, BID)
     Route: 065
     Dates: start: 2013
  8. CLOTRIMAZOLE [Concomitant]
     Active Substance: CLOTRIMAZOLE
     Indication: Prophylaxis
  9. CALCIUM\CHOLECALCIFEROL [Concomitant]
     Active Substance: CALCIUM\CHOLECALCIFEROL
     Indication: Liver transplant
     Dosage: 1000 UG, QD (500 UG, BID)
     Route: 065
     Dates: start: 2018
  10. CALCIUM\CHOLECALCIFEROL [Concomitant]
     Active Substance: CALCIUM\CHOLECALCIFEROL
     Indication: Bone density abnormal
  11. PREDNISONE [Concomitant]
     Active Substance: PREDNISONE
     Indication: Transplant rejection
     Dosage: 30 MG, QD
     Route: 065
     Dates: start: 2018
  12. SIROLIMUS [Concomitant]
     Active Substance: SIROLIMUS
     Indication: Transplant rejection
     Dosage: 2 MG, QD
     Route: 065
     Dates: start: 2020
  13. URSODIOL [Concomitant]
     Active Substance: URSODIOL
     Indication: Bile output
     Dosage: 600 MG, QD (300 MG, BID)
     Route: 065
     Dates: start: 2018
  14. VALCYTE [Concomitant]
     Active Substance: VALGANCICLOVIR HYDROCHLORIDE
     Indication: Cytomegalovirus infection
     Dosage: 450 MG, QD
     Route: 065
     Dates: start: 2018
  15. VITAMINS [Concomitant]
     Active Substance: VITAMINS
     Indication: Pregnancy
     Dosage: 1 DOSAGE FORM, QD
     Route: 065
  16. MAGNESIUM [Concomitant]
     Active Substance: MAGNESIUM
     Indication: Product used for unknown indication
     Route: 065
  17. ACTIGALL [Concomitant]
     Active Substance: URSODIOL
     Indication: Cholestasis
     Route: 065
     Dates: start: 20240611
  18. KEFLEX [Concomitant]
     Active Substance: CEPHALEXIN
     Indication: Urinary tract infection
     Dosage: 1000 MG, QD
     Route: 065
     Dates: start: 20240606, end: 20240613

REACTIONS (5)
  - Premature delivery [Unknown]
  - Cholestasis [Unknown]
  - Foetal growth restriction [Unknown]
  - Thrombocytopenia [Unknown]
  - Exposure during pregnancy [Unknown]

NARRATIVE: CASE EVENT DATE: 20241109
